FAERS Safety Report 9580629 (Version 1)
Quarter: 2013Q3

REPORT INFORMATION
  Report Type: Spontaneous
  Country: US (occurrence: None)
  Receive Date: 20130930
  Receipt Date: 20130930
  Transmission Date: 20140515
  Serious: Yes (Other)
  Sender: FDA-Public Use
  Company Number: ABR_01134_2013

PATIENT
  Age: 34 Year
  Sex: Male

DRUGS (2)
  1. EDARBI [Suspect]
     Indication: HYPERTENSION
  2. OTHER MEDICATIONS [Suspect]
     Indication: PRODUCT USED FOR UNKNOWN INDICATION
     Dosage: DF ( UNKNOWN)

REACTIONS (1)
  - Hyperkalaemia [None]
